FAERS Safety Report 14768325 (Version 2)
Quarter: 2019Q1

REPORT INFORMATION
  Report Type: Report from Study
  Country: NL (occurrence: NL)
  Receive Date: 20180417
  Receipt Date: 20190220
  Transmission Date: 20190417
  Serious: Yes (Hospitalization)
  Sender: FDA-Public Use
  Company Number: NL-ROCHE-2104415

PATIENT

DRUGS (4)
  1. BEVACIZUMAB. [Suspect]
     Active Substance: BEVACIZUMAB
     Indication: COLORECTAL CANCER
     Dosage: THE DATE OF LAST DOSE WAS 07/JUN/2016 PRIOR TO AE
     Route: 042
     Dates: start: 20160607
  2. 5-FLUOROURACIL [Suspect]
     Active Substance: FLUOROURACIL
     Indication: COLORECTAL CANCER
     Dosage: THE DATE OF LAST DOSE WAS 08/JUN/2016 PRIOR TO AE
     Route: 042
     Dates: start: 20160607
  3. IRINOTECAN [Suspect]
     Active Substance: IRINOTECAN
     Indication: COLORECTAL CANCER
     Dosage: THE DATE OF LAST DOSE WAS 07/JUN/2016 PRIOR TO AE
     Route: 042
     Dates: start: 20160607
  4. OXALIPLATIN. [Suspect]
     Active Substance: OXALIPLATIN
     Indication: COLORECTAL CANCER
     Dosage: THE DATE OF LAST DOSE WAS 07/JUN/2016 PRIOR TO AE
     Route: 042
     Dates: start: 20160607

REACTIONS (3)
  - Tumour lysis syndrome [Recovered/Resolved]
  - Diarrhoea [Recovered/Resolved]
  - Pyrexia [Recovered/Resolved]

NARRATIVE: CASE EVENT DATE: 20160620
